FAERS Safety Report 8443684-3 (Version None)
Quarter: 2012Q2

REPORT INFORMATION
  Report Type: 
  Country: None (occurrence: None)
  Receive Date: 20120618
  Receipt Date: 20120606
  Transmission Date: 20120825
  Serious: Yes (Hospitalization)
  Sender: FDA-Public Use
  Company Number: GB-JNJFOC-20120603844

PATIENT
  Age: 64 Year
  Sex: Male

DRUGS (1)
  1. ABIRATERONE [Suspect]
     Indication: PROSTATE CANCER
     Route: 048

REACTIONS (3)
  - JAUNDICE [None]
  - MALAISE [None]
  - METASTASES TO LIVER [None]
